FAERS Safety Report 11812251 (Version 3)
Quarter: 2016Q1

REPORT INFORMATION
  Report Type: Report from Study
  Country: FR (occurrence: FR)
  Receive Date: 20151208
  Receipt Date: 20160102
  Transmission Date: 20160525
  Serious: Yes (Death, Hospitalization, Other)
  Sender: FDA-Public Use
  Company Number: FR-BRISTOL-MYERS SQUIBB COMPANY-BMS-2015-084581

PATIENT
  Sex: Male
  Weight: 59 kg

DRUGS (2)
  1. NIVOLUMAB [Suspect]
     Active Substance: NIVOLUMAB
     Dosage: 177 MG, UNK
     Route: 042
     Dates: start: 20150916
  2. NIVOLUMAB [Suspect]
     Active Substance: NIVOLUMAB
     Indication: SMALL CELL LUNG CANCER
     Dosage: 177 MG, UNK
     Route: 042
     Dates: start: 20150901

REACTIONS (3)
  - Lung infection [Fatal]
  - Tumour pain [Unknown]
  - Atrial fibrillation [Fatal]
